FAERS Safety Report 8596977-3 (Version None)
Quarter: 2012Q3

REPORT INFORMATION
  Report Type: 
  Country: None (occurrence: None)
  Receive Date: 20120815
  Receipt Date: 20120808
  Transmission Date: 20120928
  Serious: Yes (Life-Threatening, Hospitalization)
  Sender: FDA-Public Use
  Company Number: US-ROCHE-1066501

PATIENT
  Sex: Female
  Weight: 93.88 kg

DRUGS (9)
  1. ACETAMINOPHEN [Concomitant]
  2. COPEGUS [Suspect]
     Indication: HEPATITIS C
     Dosage: 3 DOSAGE FORM
     Route: 048
     Dates: start: 20120120, end: 20120129
  3. ASCORBIC ACID [Concomitant]
  4. CLONAZEPAM [Concomitant]
     Dates: end: 20120127
  5. NAPROXEN [Concomitant]
  6. PEGASYS [Suspect]
     Indication: HEPATITIS C
     Route: 058
     Dates: start: 20120120, end: 20120127
  7. LISINOPRIL [Concomitant]
  8. CALCIUM [Concomitant]
  9. BLINDED ALISPORIVIR [Suspect]
     Indication: HEPATITIS C
     Route: 048
     Dates: start: 20120120, end: 20120129

REACTIONS (3)
  - SUBARACHNOID HAEMORRHAGE [None]
  - INTRAVENTRICULAR HAEMORRHAGE [None]
  - CONCOMITANT DISEASE PROGRESSION [None]
